FAERS Safety Report 9040681 (Version 1)
Quarter: 2013Q1

REPORT INFORMATION
  Report Type: Report from Study
  Country: US (occurrence: US)
  Receive Date: 20130129
  Receipt Date: 20130129
  Transmission Date: 20140127
  Serious: Yes (Other)
  Sender: FDA-Public Use
  Company Number: US-ABBOTT-11P-163-0885119-00

PATIENT
  Sex: Male
  Weight: 94.43 kg

DRUGS (1)
  1. HUMIRA 40 MG/0.8 ML PEN [Suspect]
     Indication: RHEUMATOID ARTHRITIS
     Route: 058
     Dates: start: 20110607

REACTIONS (2)
  - Basal cell carcinoma [Recovering/Resolving]
  - Injection site pain [Not Recovered/Not Resolved]
